FAERS Safety Report 22381566 (Version 1)
Quarter: 2023Q2

REPORT INFORMATION
  Report Type: Spontaneous
  Country: FR (occurrence: FR)
  Receive Date: 20230530
  Receipt Date: 20230530
  Transmission Date: 20230722
  Serious: Yes (Other)
  Sender: FDA-Public Use
  Company Number: None

PATIENT
  Age: 2 Year
  Sex: Female
  Weight: 11.399 kg

DRUGS (3)
  1. ETOPOSIDE PHOSPHATE [Suspect]
     Active Substance: ETOPOSIDE PHOSPHATE
     Indication: Ewing^s sarcoma metastatic
     Dosage: DAILY DOSE: 52 MILLIGRAM
     Route: 042
     Dates: start: 20221222, end: 20221222
  2. IFOSFAMIDE [Suspect]
     Active Substance: IFOSFAMIDE
  3. MESNA [Suspect]
     Active Substance: MESNA

REACTIONS (3)
  - Conjunctival hyperaemia [Recovered/Resolved]
  - Tachycardia [Recovered/Resolved]
  - Product use in unapproved indication [Recovered/Resolved]

NARRATIVE: CASE EVENT DATE: 20221222
